FAERS Safety Report 24446160 (Version 1)
Quarter: 2024Q4

REPORT INFORMATION
  Report Type: Spontaneous
  Country: US (occurrence: None)
  Receive Date: 20241016
  Receipt Date: 20241016
  Transmission Date: 20250114
  Serious: No
  Sender: Public
  Company Number: None

PATIENT
  Age: 61 Year
  Sex: Female
  Weight: 105.75 kg

DRUGS (1)
  1. NITROFURANTOIN [Suspect]
     Active Substance: NITROFURANTOIN
     Indication: Urinary tract infection
     Dosage: OTHER QUANTITY : 14 CAPSULE(S);?FREQUENCY : TWICE A DAY;?
     Route: 048
     Dates: start: 20241007, end: 20241010

REACTIONS (4)
  - Pyrexia [None]
  - Cough [None]
  - Fatigue [None]
  - Hypersensitivity [None]

NARRATIVE: CASE EVENT DATE: 20241008
